FAERS Safety Report 14910066 (Version 1)
Quarter: 2018Q2

REPORT INFORMATION
  Report Type: Spontaneous
  Country: DE (occurrence: DE)
  Receive Date: 20180517
  Receipt Date: 20180517
  Transmission Date: 20180711
  Serious: Yes (Other)
  Sender: FDA-Public Use
  Company Number: DE-MYLANLABS-2018M1032098

PATIENT
  Age: 32 Year
  Sex: Male

DRUGS (4)
  1. TACROLIMUS. [Suspect]
     Active Substance: TACROLIMUS
     Indication: RENAL TRANSPLANT
     Dosage: 15 MG, QD
     Route: 048
  2. SANDIMMUN [Suspect]
     Active Substance: CYCLOSPORINE
     Indication: PRODUCT USED FOR UNKNOWN INDICATION
     Dosage: UNKNOWN FREQ. (2 MONTHS)
     Route: 065
  3. TACROLIMUS. [Suspect]
     Active Substance: TACROLIMUS
     Dosage: 13 MG, ONCE DAILY (7MG MORNING AND 6 MG EVENING)
     Route: 048
  4. PROGRAF [Suspect]
     Active Substance: TACROLIMUS\TACROLIMUS ANHYDROUS
     Indication: RENAL TRANSPLANT
     Dosage: UNKNOWN FREQ. (10 DAYS)
     Route: 048

REACTIONS (5)
  - Intentional product misuse [Unknown]
  - Large intestinal ulcer [Recovering/Resolving]
  - Abdominal pain upper [Recovering/Resolving]
  - Immunosuppressant drug level increased [Unknown]
  - Hypermetabolism [Unknown]
